FAERS Safety Report 5794485-6 (Version None)
Quarter: 2008Q2

REPORT INFORMATION
  Report Type: 
  Country: None (occurrence: None)
  Receive Date: 20080627
  Receipt Date: 20080627
  Transmission Date: 20081010
  Serious: Yes (Hospitalization)
  Sender: FDA-Public Use
  Company Number: None

PATIENT
  Sex: Male
  Weight: 149.687 kg

DRUGS (3)
  1. ENVIRONMENTAL ALLERGEN TOLERANCE TEST [Suspect]
     Indication: ALLERGY TO ANIMAL
     Dates: start: 20071002
  2. ENVIRONMENTAL ALLERGEN TOLERANCE TEST [Suspect]
     Indication: MULTIPLE ALLERGIES
     Dates: start: 20071002
  3. ENVIRONMENTAL ALLERGEN TOLERANCE TEST [Suspect]
     Indication: MYCOTIC ALLERGY
     Dates: start: 20071002

REACTIONS (5)
  - ERYTHEMA [None]
  - HYPERHIDROSIS [None]
  - HYPOTENSION [None]
  - PRURITUS [None]
  - RASH [None]
